FAERS Safety Report 8078426-7 (Version None)
Quarter: 2012Q1

REPORT INFORMATION
  Report Type: 
  Country: None (occurrence: None)
  Receive Date: 20120123
  Receipt Date: 20120109
  Transmission Date: 20120608
  Serious: Yes (Death)
  Sender: FDA-Public Use
  Company Number: 2012MA000671

PATIENT
  Age: 49 Year
  Sex: Male
  Weight: 65.7716 kg

DRUGS (3)
  1. CODEINE SULFATE [Concomitant]
  2. OXYCODONE HCL [Concomitant]
  3. PAREGORIC LIQUID USP (ALPHARMA) [Suspect]

REACTIONS (2)
  - SELF-MEDICATION [None]
  - INCOHERENT [None]
